FAERS Safety Report 24651749 (Version 2)
Quarter: 2024Q4

REPORT INFORMATION
  Report Type: Spontaneous
  Country: JP (occurrence: JP)
  Receive Date: 20241122
  Receipt Date: 20241128
  Transmission Date: 20250115
  Serious: Yes (Other)
  Sender: BOEHRINGER INGELHEIM
  Company Number: JP-NBI-2024-BI-061896

PATIENT
  Age: 82 Year
  Sex: Female
  Weight: 46.9 kg

DRUGS (2)
  1. MICARDIS [Suspect]
     Active Substance: TELMISARTAN
     Indication: Hypertension
     Dosage: AFTER BREAKFAST
     Route: 048
  2. ROSUVASTATIN CALCIUM [Concomitant]
     Active Substance: ROSUVASTATIN CALCIUM
     Indication: Dyslipidaemia
     Dosage: AFTER BREAKFAST
     Route: 048

REACTIONS (1)
  - Paroxysmal atrioventricular block [Unknown]
